FAERS Safety Report 5741261-6 (Version None)
Quarter: 2008Q2

REPORT INFORMATION
  Report Type: 
  Country: None (occurrence: None)
  Receive Date: 20080514
  Receipt Date: 20080423
  Transmission Date: 20081010
  Serious: Yes (Death)
  Sender: FDA-Public Use
  Company Number: 2008US000168

PATIENT
  Age: 49 Year
  Sex: Male

DRUGS (7)
  1. PROGRAF [Suspect]
     Indication: RENAL TRANSPLANT
     Dosage: 2 MG, BID, ORAL
     Route: 048
     Dates: start: 20030601, end: 20080105
  2. CELLCEPT               (MYCOPHENOLATE MOFETIL) FORMULATION [Concomitant]
  3. LASIX      (FUROSEMIDE SODIUM) FORMULATION [Concomitant]
  4. ATENOLOL (ATENOLOL) FORMULATION [Concomitant]
  5. MULTIVITAMIN [Concomitant]
  6. ASCORBIC ACID [Concomitant]
  7. VALIUM (SODIUM BENZOATE, DIAZEPAM, BENZYL ALCOHOL) [Concomitant]

REACTIONS (1)
  - ANEURYSM [None]
